FAERS Safety Report 13558624 (Version 1)
Quarter: 2017Q2

REPORT INFORMATION
  Report Type: Spontaneous
  Country: US (occurrence: US)
  Receive Date: 20170518
  Receipt Date: 20170518
  Transmission Date: 20170830
  Serious: No
  Sender: FDA-Public Use
  Company Number: None

PATIENT
  Age: 59 Year
  Sex: Female

DRUGS (2)
  1. ARMODAFINIL 250MG [Suspect]
     Active Substance: ARMODAFINIL
     Indication: SLEEP APNOEA SYNDROME
     Dosage: 250MG 1 AM 1/2 AT NOON PO
     Route: 048
     Dates: start: 20160906
  2. ARMODAFINIL 250MG [Suspect]
     Active Substance: ARMODAFINIL
     Indication: FATIGUE
     Dosage: 250MG 1 AM 1/2 AT NOON PO
     Route: 048
     Dates: start: 20160906

REACTIONS (6)
  - Dizziness [None]
  - Headache [None]
  - Asthenia [None]
  - Diarrhoea [None]
  - Drug intolerance [None]
  - Product substitution issue [None]

NARRATIVE: CASE EVENT DATE: 20160906
